FAERS Safety Report 8156893-8 (Version None)
Quarter: 2012Q1

REPORT INFORMATION
  Report Type: 
  Country: None (occurrence: None)
  Receive Date: 20120222
  Receipt Date: 20111201
  Transmission Date: 20120608
  Serious: Yes (Hospitalization)
  Sender: FDA-Public Use
  Company Number: CN-GLAXOSMITHKLINE-B0781882A

PATIENT
  Age: 45 Year
  Sex: Female

DRUGS (1)
  1. FLUTICASONE PROPIONATE/SALMETEROL [Suspect]
     Indication: COUGH
     Dosage: 1PUFF TWICE PER DAY
     Route: 055
     Dates: start: 20111101, end: 20111101

REACTIONS (5)
  - INTERSTITIAL LUNG DISEASE [None]
  - DYSPNOEA [None]
  - TREMOR [None]
  - PALPITATIONS [None]
  - HEART RATE DECREASED [None]
